FAERS Safety Report 6386163-X (Version None)
Quarter: 2009Q4

REPORT INFORMATION
  Report Type: 
  Country: None (occurrence: None)
  Receive Date: 20091002
  Receipt Date: 20090105
  Transmission Date: 20100525
  Serious: No
  Sender: FDA-Public Use
  Company Number: US-ASTRAZENECA-2009UW00245

PATIENT
  Age: 83 Year
  Sex: Female
  Weight: 61.2 kg

DRUGS (4)
  1. ARIMIDEX [Suspect]
     Indication: BREAST CANCER STAGE I
     Route: 048
     Dates: start: 20080101
  2. DILANTIN [Concomitant]
     Dates: start: 19810101
  3. OXYBUTIN [Concomitant]
  4. SYNTHROID [Concomitant]

REACTIONS (1)
  - FATIGUE [None]
